FAERS Safety Report 6285363-7 (Version None)
Quarter: 2009Q3

REPORT INFORMATION
  Report Type: 
  Country: None (occurrence: None)
  Receive Date: 20090727
  Receipt Date: 20090720
  Transmission Date: 20100115
  Serious: Yes (Hospitalization, Other)
  Sender: FDA-Public Use
  Company Number: AU-ROXANE LABORATORIES, INC.-2009-RO-00718RO

PATIENT
  Age: 45 Year
  Sex: Female

DRUGS (10)
  1. METHOTREXATE [Suspect]
     Indication: ARTHROPATHY
     Route: 048
     Dates: start: 20060516
  2. METHOTREXATE [Suspect]
     Indication: MYOSITIS
     Route: 048
  3. METHOTREXATE [Suspect]
     Route: 058
     Dates: start: 20060816
  4. BOSENTAN [Suspect]
     Indication: PULMONARY ARTERIAL HYPERTENSION
     Dosage: 250 MG
     Dates: start: 20050504
  5. PREDNISOLONE [Suspect]
     Dosage: 5 MG
  6. FOLIC ACID [Suspect]
     Dosage: 0.5 MG
  7. OMEPRAZOLE [Suspect]
     Dosage: 40 MG
  8. MULTI-VITAMIN [Suspect]
  9. FISH OIL [Suspect]
  10. SILDENALFIL [Concomitant]
     Indication: PULMONARY ARTERIAL HYPERTENSION
     Dosage: 100 MG

REACTIONS (4)
  - CHOLELITHIASIS [None]
  - DRUG INEFFECTIVE [None]
  - DRUG INTERACTION [None]
  - HEPATOTOXICITY [None]
